FAERS Safety Report 12915909 (Version 1)
Quarter: 2016Q4

REPORT INFORMATION
  Report Type: Spontaneous
  Country: US (occurrence: US)
  Receive Date: 20161103
  Receipt Date: 20161103
  Transmission Date: 20170207
  Serious: Yes (Hospitalization)
  Sender: FDA-Public Use
  Company Number: None

PATIENT
  Age: 57 Year
  Sex: Male
  Weight: 57 kg

DRUGS (7)
  1. METHOTREXATE. [Suspect]
     Active Substance: METHOTREXATE
     Dates: end: 20150217
  2. DOXORUBICIN HYDROCHLORIDE. [Suspect]
     Active Substance: DOXORUBICIN HYDROCHLORIDE
     Dates: end: 20150216
  3. VINCRISTINE SULFATE. [Suspect]
     Active Substance: VINCRISTINE SULFATE
     Dates: end: 20150216
  4. ETOPOSIDE (VP-6) [Suspect]
     Active Substance: ETOPOSIDE
     Dates: end: 20150216
  5. CYCLOPHOSPHAMIDE. [Suspect]
     Active Substance: CYCLOPHOSPHAMIDE
     Dates: end: 20160217
  6. PREDNISONE. [Suspect]
     Active Substance: PREDNISONE
     Dates: end: 20150217
  7. RITUXIMAB (MOAB C2B8 ANTI CD20, CHIMERIC) [Suspect]
     Active Substance: RITUXIMAB
     Dates: end: 20150213

REACTIONS (6)
  - Hypovolaemia [None]
  - Hypophagia [None]
  - Mucosal inflammation [None]
  - Febrile neutropenia [None]
  - Dysphagia [None]
  - Acute kidney injury [None]

NARRATIVE: CASE EVENT DATE: 20150226
